FAERS Safety Report 6702529-X (Version None)
Quarter: 2010Q2

REPORT INFORMATION
  Report Type: 
  Country: None (occurrence: None)
  Receive Date: 20100429
  Receipt Date: 20100422
  Transmission Date: 20101027
  Serious: Yes (Hospitalization)
  Sender: FDA-Public Use
  Company Number: JP-ROCHE-699458

PATIENT
  Sex: Female
  Weight: 60 kg

DRUGS (17)
  1. TOCILIZUMAB [Suspect]
     Indication: RHEUMATOID ARTHRITIS
     Route: 041
     Dates: start: 20090511, end: 20090511
  2. TOCILIZUMAB [Suspect]
     Route: 041
     Dates: start: 20090608, end: 20090608
  3. TOCILIZUMAB [Suspect]
     Route: 041
     Dates: start: 20090706, end: 20090706
  4. TOCILIZUMAB [Suspect]
     Route: 041
     Dates: start: 20090907, end: 20090907
  5. TOCILIZUMAB [Suspect]
     Route: 041
     Dates: start: 20091005, end: 20091005
  6. TOCILIZUMAB [Suspect]
     Route: 041
     Dates: start: 20091102, end: 20091102
  7. TOCILIZUMAB [Suspect]
     Dosage: THERAPY INTERRUPTED
     Route: 041
     Dates: start: 20091130
  8. RHEUMATREX [Concomitant]
     Route: 048
  9. AZULFIDINE [Concomitant]
     Dosage: DOSE FORM: ENTERIC COATING DRUG
     Route: 048
  10. PREDONINE [Concomitant]
     Route: 048
     Dates: end: 20090608
  11. PREDNISOLONE [Concomitant]
     Dosage: DOSE FORM: PERORAL AGENT
     Route: 048
     Dates: start: 20090609, end: 20091102
  12. PREDNISOLONE [Concomitant]
     Route: 048
     Dates: start: 20091103, end: 20091130
  13. PREDNISOLONE [Concomitant]
     Route: 048
     Dates: start: 20091201
  14. FOLIC ACID [Concomitant]
     Dosage: DOSE FORM: PERORAL AGENT
     Route: 048
  15. LOXONIN [Concomitant]
     Dosage: DOSE FORM: PERORAL AGENT
     Route: 048
  16. MUCOSTA [Concomitant]
     Dosage: DOSE FORM: PERORAL AGENT
     Route: 048
  17. MAGMITT [Concomitant]
     Route: 048

REACTIONS (1)
  - CEREBRAL INFARCTION [None]
